FAERS Safety Report 7044530-5 (Version None)
Quarter: 2010Q4

REPORT INFORMATION
  Report Type: 
  Country: None (occurrence: None)
  Receive Date: 20101014
  Receipt Date: 20100929
  Transmission Date: 20110411
  Serious: Yes (Other)
  Sender: FDA-Public Use
  Company Number: PHHY2010AU31043

PATIENT
  Sex: Female

DRUGS (4)
  1. DIOVAN [Suspect]
     Indication: HYPERTENSION
     Dosage: 80 MG DAILY
     Route: 048
     Dates: start: 20100101, end: 20100301
  2. ETHAMBUTOL HYDROCHLORIDE [Interacting]
     Indication: MYCOBACTERIAL INFECTION
     Dosage: 1.6 G PER DAY
     Dates: start: 20090901, end: 20100301
  3. RIFAMPICIN [Concomitant]
     Indication: PULMONARY TUBERCULOSIS
     Dosage: 600 MG PER DAY
     Dates: start: 20090901, end: 20100301
  4. CLARITHROMYCIN [Concomitant]
     Indication: PULMONARY TUBERCULOSIS
     Dosage: 1 G PER DAY
     Dates: start: 20090901, end: 20100301

REACTIONS (4)
  - DRUG INTERACTION [None]
  - RETINAL DISORDER [None]
  - RETINOPATHY [None]
  - VISUAL IMPAIRMENT [None]
